FAERS Safety Report 7967061-4 (Version None)
Quarter: 2011Q4

REPORT INFORMATION
  Report Type: 
  Country: None (occurrence: None)
  Receive Date: 20111207
  Receipt Date: 20111207
  Transmission Date: 20120403
  Serious: Yes (Death, Hospitalization)
  Sender: FDA-Public Use
  Company Number: None

PATIENT
  Sex: Male
  Weight: 66.9 kg

DRUGS (2)
  1. ETOPOSIDE [Suspect]
     Dosage: 564 MG
     Dates: end: 20110520
  2. CISPLATIN [Suspect]
     Dosage: 140.3 MG
     Dates: end: 20110518

REACTIONS (4)
  - BRONCHITIS [None]
  - DISEASE PROGRESSION [None]
  - VOMITING [None]
  - NAUSEA [None]
